FAERS Safety Report 11652814 (Version 1)
Quarter: 2015Q4

REPORT INFORMATION
  Report Type: Spontaneous
  Country: US (occurrence: US)
  Receive Date: 20151022
  Receipt Date: 20151022
  Transmission Date: 20160304
  Serious: Yes (Hospitalization)
  Sender: FDA-Public Use
  Company Number: US-ACTELION-A-NJ2015-125879

PATIENT
  Age: 53 Year
  Sex: Female

DRUGS (2)
  1. ADCIRCA [Concomitant]
     Active Substance: TADALAFIL
  2. VELETRI [Suspect]
     Active Substance: EPOPROSTENOL
     Indication: PULMONARY ARTERIAL HYPERTENSION
     Dosage: 28 NG/KG, PER MIN
     Route: 042
     Dates: start: 20141124

REACTIONS (11)
  - Diarrhoea [Unknown]
  - Nausea [Unknown]
  - Stress [Unknown]
  - Feeling cold [Unknown]
  - Chest pain [Unknown]
  - Chills [Unknown]
  - Asthenia [Unknown]
  - Palpitations [Unknown]
  - Hyperhidrosis [Unknown]
  - Feeling hot [Unknown]
  - Dyspnoea [Unknown]
